FAERS Safety Report 20946134 (Version 1)
Quarter: 2022Q2

REPORT INFORMATION
  Report Type: Spontaneous
  Country: US (occurrence: US)
  Receive Date: 20220610
  Receipt Date: 20220610
  Transmission Date: 20220720
  Serious: No
  Sender: FDA-Public Use
  Company Number: US-PFIZER INC-202200821162

PATIENT
  Age: 80 Year
  Sex: Female

DRUGS (1)
  1. IBRANCE [Suspect]
     Active Substance: PALBOCICLIB
     Indication: Breast cancer
     Dosage: 100 MG, 1 TAB ONCE A DAY FOR 21 DAYS
     Route: 048
     Dates: start: 20220411, end: 20220603

REACTIONS (2)
  - Red blood cell count decreased [Unknown]
  - White blood cell count decreased [Unknown]
